FAERS Safety Report 9039062 (Version 1)
Quarter: 2013Q1

REPORT INFORMATION
  Report Type: Spontaneous
  Country: US (occurrence: US)
  Receive Date: 20130129
  Receipt Date: 20130129
  Transmission Date: 20140127
  Serious: No
  Sender: FDA-Public Use
  Company Number: US-009507513-1301USA012085

PATIENT
  Age: 19 Year
  Sex: Female
  Weight: 40.82 kg

DRUGS (1)
  1. IMPLANON [Suspect]
     Indication: CONTRACEPTION
     Dosage: 1 ROD, FOR 3 YEARS
     Route: 059
     Dates: start: 20111026

REACTIONS (2)
  - Ovarian cyst [Unknown]
  - Menstruation irregular [Unknown]
